FAERS Safety Report 11150941 (Version 1)
Quarter: 2015Q2

REPORT INFORMATION
  Report Type: Spontaneous
  Country: US (occurrence: None)
  Receive Date: 20150528
  Receipt Date: 20150528
  Transmission Date: 20150821
  Serious: No
  Sender: FDA-Public Use
  Company Number: 1210513-2015-00132

PATIENT

DRUGS (2)
  1. WALGREENS TRIPLE ANTIBOTIC PLUS PAIN RELIEF [Suspect]
     Active Substance: BACITRACIN ZINC\NEOMYCIN SULFATE\POLYMYXIN B SULFATE\PRAMOXINE HYDROCHLORIDE
     Indication: ANTIBIOTIC THERAPY
     Route: 061
  2. WALGREENS TRIPLE ANTIBOTIC PLUS PAIN RELIEF [Suspect]
     Active Substance: BACITRACIN ZINC\NEOMYCIN SULFATE\POLYMYXIN B SULFATE\PRAMOXINE HYDROCHLORIDE
     Indication: THERAPEUTIC SKIN CARE TOPICAL
     Route: 061

REACTIONS (3)
  - Swelling face [None]
  - Eye swelling [None]
  - Hypersensitivity [None]
